FAERS Safety Report 5232248-0 (Version None)
Quarter: 2007Q1

REPORT INFORMATION
  Report Type: 
  Country: None (occurrence: None)
  Receive Date: 20070207
  Receipt Date: 20070131
  Transmission Date: 20070707
  Serious: Yes (Other)
  Sender: FDA-Public Use
  Company Number: JP-BAYER-200611295BYL

PATIENT
  Age: 28 Year
  Sex: Male

DRUGS (13)
  1. ADALAT [Suspect]
     Indication: HYPERTENSION
     Dosage: TOTAL DAILY DOSE: 40 MG  UNIT DOSE: 20 MG
     Route: 048
     Dates: start: 20061205
  2. AMLODIPINE BESYLATE [Suspect]
     Indication: HYPERTENSION
     Dosage: TOTAL DAILY DOSE: 10 MG  UNIT DOSE: 5 MG
     Route: 048
     Dates: start: 20061207, end: 20061218
  3. ADALAT [Concomitant]
     Indication: HYPERTENSION
     Dosage: TOTAL DAILY DOSE: 40 MG  UNIT DOSE: 20 MG
     Route: 048
     Dates: start: 20061125, end: 20061205
  4. CARNACULIN [Concomitant]
     Indication: RETINAL HAEMORRHAGE
     Dosage: UNIT DOSE: 25 MG
     Route: 048
     Dates: start: 20061127
  5. ADONA [Concomitant]
     Indication: RETINAL HAEMORRHAGE
     Dosage: UNIT DOSE: 30 MG
     Route: 048
     Dates: start: 20061127
  6. ARTIST [Concomitant]
     Indication: HYPERTENSION
     Dosage: TOTAL DAILY DOSE: 10 MG  UNIT DOSE: 10 MG
     Route: 048
     Dates: start: 20061206
  7. BLOPRESS [Concomitant]
     Indication: HYPERTENSION
     Dosage: TOTAL DAILY DOSE: 4 MG  UNIT DOSE: 4 MG
     Route: 048
     Dates: start: 20061202, end: 20061203
  8. BLOPRESS [Concomitant]
     Dosage: TOTAL DAILY DOSE: 8 MG  UNIT DOSE: 4 MG
     Route: 048
     Dates: start: 20061204, end: 20061218
  9. BLOPRESS [Concomitant]
     Dosage: UNIT DOSE: 4 MG
     Route: 048
     Dates: start: 20061219
  10. CARDENALIN [Concomitant]
     Indication: HYPERTENSION
     Dosage: TOTAL DAILY DOSE: 4 MG  UNIT DOSE: 1 MG
     Route: 048
     Dates: start: 20061129, end: 20061217
  11. CARDENALIN [Concomitant]
     Dosage: TOTAL DAILY DOSE: 8 MG  UNIT DOSE: 1 MG
     Route: 048
     Dates: start: 20061218
  12. CARDENALIN [Concomitant]
     Dosage: TOTAL DAILY DOSE: 2 MG  UNIT DOSE: 1 MG
     Route: 048
     Dates: start: 20061128, end: 20061128
  13. LANSOPRAZOLE [Concomitant]
     Dosage: TOTAL DAILY DOSE: 15 MG  UNIT DOSE: 15 MG
     Route: 048
     Dates: start: 20061125

REACTIONS (1)
  - LIVER DISORDER [None]
